FAERS Safety Report 25605898 (Version 2)
Quarter: 2025Q3

REPORT INFORMATION
  Report Type: Spontaneous
  Country: US (occurrence: US)
  Receive Date: 20250725
  Receipt Date: 20250804
  Transmission Date: 20251021
  Serious: No
  Sender: BAYER HEALTHCARE PHARMACEUTICALS INC.
  Company Number: US-BAYER-2025A097468

PATIENT
  Age: 18 Year
  Sex: Female

DRUGS (1)
  1. MIRENA [Suspect]
     Active Substance: LEVONORGESTREL
     Indication: Contraception
     Dosage: 20?G/DAY
     Route: 015
     Dates: start: 20240912

REACTIONS (6)
  - Peripheral swelling [Recovered/Resolved]
  - Abdominal pain lower [Not Recovered/Not Resolved]
  - Vaginal discharge [Recovered/Resolved]
  - Menstruation delayed [Not Recovered/Not Resolved]
  - Headache [None]
  - Vaginal haemorrhage [None]

NARRATIVE: CASE EVENT DATE: 20250701
